FAERS Safety Report 4376484-4 (Version None)
Quarter: 2004Q2

REPORT INFORMATION
  Report Type: 
  Country: None (occurrence: None)
  Receive Date: 20040608
  Receipt Date: 20040524
  Transmission Date: 20050107
  Serious: Yes (Other)
  Sender: FDA-Public Use
  Company Number: ENTC2004-0090

PATIENT
  Age: 87 Year
  Sex: Male

DRUGS (1)
  1. STALEVO (TABLET) (LEVODOPA, CARBIDOPA, ENTACAPONE) [Suspect]
     Dosage: TOPICAL
     Route: 061

REACTIONS (2)
  - ROAD TRAFFIC ACCIDENT [None]
  - SOMNOLENCE [None]
